FAERS Safety Report 13143405 (Version 2)
Quarter: 2017Q1

REPORT INFORMATION
  Report Type: Spontaneous
  Country: US (occurrence: US)
  Receive Date: 20170124
  Receipt Date: 20170206
  Transmission Date: 20170428
  Serious: Yes (Other)
  Sender: FDA-Public Use
  Company Number: US-PFIZER INC-2017028162

PATIENT
  Age: 27 Year
  Sex: Female
  Weight: 91 kg

DRUGS (3)
  1. EPIPEN JR [Suspect]
     Active Substance: EPINEPHRINE
  2. VENLAFAXINE [Concomitant]
     Active Substance: VENLAFAXINE HYDROCHLORIDE
     Indication: DEPRESSION
     Dosage: 75 MG, UNK
  3. SERTRALINE [Concomitant]
     Active Substance: SERTRALINE HYDROCHLORIDE
     Indication: DEPRESSION
     Dosage: 100 MG, UNK

REACTIONS (5)
  - Device defective [Unknown]
  - Expired product administered [Recovered/Resolved]
  - Injury associated with device [Recovered/Resolved]
  - Skeletal injury [Unknown]
  - Accidental exposure to product [Recovered/Resolved]

NARRATIVE: CASE EVENT DATE: 201701
